FAERS Safety Report 9528232 (Version 1)
Quarter: 2013Q3

REPORT INFORMATION
  Report Type: Report from Study
  Country: DK (occurrence: DK)
  Receive Date: 20130917
  Receipt Date: 20130917
  Transmission Date: 20140515
  Serious: Yes (Congenital Anomaly)
  Sender: FDA-Public Use
  Company Number: PHHY2013DK102646

PATIENT
  Sex: 0

DRUGS (1)
  1. TRILEPTAL [Suspect]
     Dosage: MATERNAL DOSE 1800 MG DAILY
     Route: 064

REACTIONS (2)
  - Heart disease congenital [Unknown]
  - Foetal exposure during pregnancy [Unknown]
